FAERS Safety Report 12330569 (Version 1)
Quarter: 2016Q2

REPORT INFORMATION
  Report Type: Spontaneous
  Country: IT (occurrence: IT)
  Receive Date: 20160504
  Receipt Date: 20160504
  Transmission Date: 20160815
  Serious: Yes (Hospitalization)
  Sender: FDA-Public Use
  Company Number: IT-ACCORD-040132

PATIENT
  Age: 78 Year
  Sex: Female

DRUGS (6)
  1. RISEDRONATE EG [Concomitant]
     Active Substance: RISEDRONATE SODIUM
     Dosage: STRENGTH: 35 MG
     Route: 048
  2. EUTIROX [Concomitant]
     Active Substance: LEVOTHYROXINE SODIUM
     Dosage: STRENGTH: 25 MG
     Route: 048
  3. GLIMEPIRIDE. [Suspect]
     Active Substance: GLIMEPIRIDE
     Indication: DIABETES MELLITUS
     Route: 048
  4. BARNIDIPINE [Concomitant]
     Active Substance: BARNIDIPINE
     Route: 048
  5. ATENOLOL/ATENOLOL HYDROCHLORIDE [Concomitant]
     Route: 048
  6. CLARITHROMYCIN/CLARITHROMYCIN LACTOBIONATE [Concomitant]
     Route: 048

REACTIONS (6)
  - Confusional state [Unknown]
  - Transient ischaemic attack [Unknown]
  - Hypoglycaemia [Unknown]
  - Nasopharyngitis [Unknown]
  - Paraesthesia oral [Unknown]
  - Cyanosis [Unknown]

NARRATIVE: CASE EVENT DATE: 20160206
